FAERS Safety Report 7523822-7 (Version None)
Quarter: 2011Q2

REPORT INFORMATION
  Report Type: 
  Country: None (occurrence: None)
  Receive Date: 20110603
  Receipt Date: 20110519
  Transmission Date: 20111010
  Serious: Yes (Hospitalization)
  Sender: FDA-Public Use
  Company Number: TR-WATSON-2011-07586

PATIENT
  Age: 16 Year
  Sex: Female

DRUGS (1)
  1. AMLODIPINE [Suspect]
     Indication: SUICIDE ATTEMPT
     Dosage: 500 MG, SINGLE

REACTIONS (4)
  - LEUKOCYTOSIS [None]
  - POISONING [None]
  - PULMONARY OEDEMA [None]
  - URINE OUTPUT DECREASED [None]
